FAERS Safety Report 4678279-0 (Version None)
Quarter: 2005Q2

REPORT INFORMATION
  Report Type: 
  Country: None (occurrence: None)
  Receive Date: 20050527
  Receipt Date: 20050517
  Transmission Date: 20051028
  Serious: Yes (Hospitalization)
  Sender: FDA-Public Use
  Company Number: 2005057468

PATIENT
  Age: 43 Year
  Sex: Female

DRUGS (13)
  1. NEURONTIN [Suspect]
     Indication: NEUROPATHIC PAIN
     Dosage: 1200 MG (400 MG, 3 IN 1 D), ORAL
     Route: 048
     Dates: end: 20050326
  2. FLUOXETINE [Suspect]
     Indication: DEPRESSION
     Dates: start: 20050318, end: 20050101
  3. ALL OTHER THERAPEUTIC PRODUCTS (ALL OTHER THERAPEUTIC PRODUCTS) [Concomitant]
  4. VOLTAREN [Concomitant]
  5. BACLOFEN [Concomitant]
  6. NITROFURANTOIN [Concomitant]
  7. ALPRAZOLAM [Concomitant]
  8. OMEPRAZOLE [Concomitant]
  9. ENOXAPARIN SODIUM [Concomitant]
  10. LACTULOSE [Concomitant]
  11. BISACODYL (BISACODYL) [Concomitant]
  12. EFFORTIL (ETILEFRINE HYDROCHLORIDE) [Concomitant]
  13. MULTIVITAMIN [Concomitant]

REACTIONS (6)
  - ANXIETY [None]
  - CONFUSIONAL STATE [None]
  - DELIRIUM [None]
  - DRUG INTERACTION [None]
  - PARAESTHESIA [None]
  - SENSORY DISTURBANCE [None]
